FAERS Safety Report 24981025 (Version 1)
Quarter: 2025Q1

REPORT INFORMATION
  Report Type: Spontaneous
  Country: CA (occurrence: CA)
  Receive Date: 20250218
  Receipt Date: 20250218
  Transmission Date: 20250408
  Serious: Yes (Other)
  Sender: MYLAN
  Company Number: CA-MYLANLABS-2023M1043642

PATIENT
  Sex: Male

DRUGS (3)
  1. REVATIO [Suspect]
     Active Substance: SILDENAFIL CITRATE
     Indication: Pulmonary arterial hypertension
     Dosage: 20 MILLIGRAM, TID (THREE TIMES A DAY)
     Route: 048
     Dates: start: 20210817
  2. UPTRAVI [Concomitant]
     Active Substance: SELEXIPAG
     Route: 065
  3. OPSUMIT [Concomitant]
     Active Substance: MACITENTAN
     Route: 065

REACTIONS (4)
  - Helicobacter infection [Unknown]
  - Diarrhoea [Not Recovered/Not Resolved]
  - Pain in jaw [Not Recovered/Not Resolved]
  - Fatigue [Not Recovered/Not Resolved]

NARRATIVE: CASE EVENT DATE: 20250101
